FAERS Safety Report 15037081 (Version 3)
Quarter: 2018Q3

REPORT INFORMATION
  Report Type: Spontaneous
  Country: IT (occurrence: IT)
  Receive Date: 20180620
  Receipt Date: 20180731
  Transmission Date: 20181010
  Serious: Yes (Other)
  Sender: FDA-Public Use
  Company Number: IT-PFIZER INC-2018246633

PATIENT
  Age: 52 Year
  Sex: Female

DRUGS (1)
  1. PHENYTOIN SODIUM. [Suspect]
     Active Substance: PHENYTOIN SODIUM
     Indication: EPILEPSY
     Dosage: UNK

REACTIONS (2)
  - Panniculitis [Unknown]
  - Agranulocytosis [Unknown]
